FAERS Safety Report 25211889 (Version 9)
Quarter: 2025Q2

REPORT INFORMATION
  Report Type: Report from Study
  Country: US (occurrence: IT)
  Receive Date: 20250418
  Receipt Date: 20250627
  Transmission Date: 20250716
  Serious: Yes (Death, Hospitalization, Other)
  Sender: STEMLINE THERAPEUTICS
  Company Number: US-STEMLINE THERAPEUTICS, INC-2025-STML-IT001385

PATIENT

DRUGS (28)
  1. ELZONRIS [Suspect]
     Active Substance: TAGRAXOFUSP-ERZS
     Indication: Blastic plasmacytoid dendritic cell neoplasia
     Route: 042
     Dates: start: 20250319
  2. ELZONRIS [Suspect]
     Active Substance: TAGRAXOFUSP-ERZS
     Route: 042
     Dates: start: 20250320
  3. ELZONRIS [Suspect]
     Active Substance: TAGRAXOFUSP-ERZS
     Route: 042
     Dates: start: 20250321
  4. ELZONRIS [Suspect]
     Active Substance: TAGRAXOFUSP-ERZS
     Route: 042
     Dates: start: 20250327
  5. ELZONRIS [Suspect]
     Active Substance: TAGRAXOFUSP-ERZS
     Route: 042
     Dates: end: 20250328
  6. PIPERACILLIN SODIUM\TAZOBACTAM SODIUM [Suspect]
     Active Substance: PIPERACILLIN SODIUM\TAZOBACTAM SODIUM
     Indication: Evidence based treatment
     Route: 042
     Dates: start: 20250320, end: 20250329
  7. RASBURICASE [Concomitant]
     Active Substance: RASBURICASE
     Indication: Tumour lysis syndrome
     Dosage: 15 MG, DAILY
     Route: 045
     Dates: start: 20250319, end: 20250322
  8. RASBURICASE [Concomitant]
     Active Substance: RASBURICASE
     Dosage: 15 MG, DAILY
     Route: 042
     Dates: start: 20250318, end: 20250323
  9. ALLOPURINOL [Concomitant]
     Active Substance: ALLOPURINOL
     Indication: Tumour lysis syndrome
     Dosage: 300 MG, DAILY
     Route: 048
     Dates: start: 20250318, end: 20250319
  10. ALLOPURINOL [Concomitant]
     Active Substance: ALLOPURINOL
     Dosage: 300 MG, DAILY
     Route: 048
     Dates: start: 20250323, end: 20250330
  11. PANTOPRAZOLE [Concomitant]
     Active Substance: PANTOPRAZOLE
     Indication: Gastrointestinal haemorrhage
     Dosage: 20 MG, DAILY
     Route: 048
     Dates: start: 20250317, end: 20250330
  12. PANTOPRAZOLE [Concomitant]
     Active Substance: PANTOPRAZOLE
     Dosage: 20 MG, DAILY
     Route: 048
     Dates: start: 20250318, end: 20250404
  13. TRAZODONE [Concomitant]
     Active Substance: TRAZODONE HYDROCHLORIDE
     Indication: Agitation
     Dosage: 25 MG, DAILY
     Route: 048
     Dates: start: 20250320, end: 20250404
  14. FUROSEMIDE [Concomitant]
     Active Substance: FUROSEMIDE
     Indication: Pleural effusion
     Dosage: 20 MG, BID (PLEURAL EFFUSION)
     Route: 042
     Dates: start: 20250322, end: 20250331
  15. LOSARTAN [Concomitant]
     Active Substance: LOSARTAN
     Indication: Hypertension
     Dosage: 12.5 MG, DAILY
     Route: 048
     Dates: start: 2015, end: 20250404
  16. BISOPROLOL [Concomitant]
     Active Substance: BISOPROLOL
     Indication: Ventricular tachycardia
     Dosage: 2.5 MG, DAILY
     Route: 048
     Dates: start: 2005, end: 20250530
  17. PREDNISONE [Concomitant]
     Active Substance: PREDNISONE
     Indication: Cytoreductive surgery
     Dosage: 25 MG, DAILY
     Route: 048
     Dates: start: 202502, end: 20250319
  18. POLYETHYLENE GLYCOLS [Concomitant]
     Active Substance: POLYETHYLENE GLYCOLS
     Indication: Constipation
     Dosage: 1 SACHET
     Route: 048
     Dates: start: 20250318, end: 20250322
  19. SODIUM BICARBONATE [Concomitant]
     Active Substance: SODIUM BICARBONATE
     Indication: Tumour lysis syndrome
     Dosage: 500 ML, TID
     Route: 042
     Dates: start: 20250318, end: 20250322
  20. SODIUM CHLORIDE [Concomitant]
     Active Substance: SODIUM CHLORIDE
     Indication: Tumour lysis syndrome
     Dosage: 1000 ML, DAILY
     Route: 042
     Dates: start: 20250318, end: 20250328
  21. PIPERACILLIN SODIUM\TAZOBACTAM SODIUM [Concomitant]
     Active Substance: PIPERACILLIN SODIUM\TAZOBACTAM SODIUM
     Indication: Antibiotic therapy
     Route: 042
     Dates: start: 20250320, end: 20250320
  22. PIPERACILLIN SODIUM\TAZOBACTAM SODIUM [Concomitant]
     Active Substance: PIPERACILLIN SODIUM\TAZOBACTAM SODIUM
     Route: 042
     Dates: start: 20250320, end: 20250330
  23. PIPERACILLIN SODIUM\TAZOBACTAM SODIUM [Concomitant]
     Active Substance: PIPERACILLIN SODIUM\TAZOBACTAM SODIUM
     Dosage: 4 G, DAILY
  24. MUPIROCIN [Concomitant]
     Active Substance: MUPIROCIN
     Indication: Staphylococcal bacteraemia
     Dates: start: 20250324, end: 20250330
  25. AZITHROMYCIN [Concomitant]
     Active Substance: AZITHROMYCIN
     Indication: Antibiotic therapy
     Dosage: 500 MG, DAILY
     Route: 048
     Dates: start: 20250331, end: 20250403
  26. CASPOFUNGIN [Concomitant]
     Active Substance: CASPOFUNGIN
     Indication: Candida infection
     Dosage: 50 MG, DAILY
     Route: 042
     Dates: start: 20250331, end: 20250401
  27. LINEZOLID [Concomitant]
     Active Substance: LINEZOLID
     Indication: Antibiotic therapy
     Dosage: 600 MG, BID
     Route: 042
     Dates: start: 20250331, end: 20250403
  28. MEROPENEM [Concomitant]
     Active Substance: MEROPENEM
     Indication: Antibiotic therapy
     Dosage: 1 G, BID
     Route: 042
     Dates: start: 20250331, end: 20250403

REACTIONS (15)
  - Cardiac arrest [Fatal]
  - Atrial fibrillation [Recovered/Resolved]
  - Capillary leak syndrome [Recovered/Resolved with Sequelae]
  - Hypernatraemia [Not Recovered/Not Resolved]
  - Hypoxia [Unknown]
  - Anaemia [Unknown]
  - Platelet count decreased [Not Recovered/Not Resolved]
  - Anaemia [Recovered/Resolved]
  - Anaemia [Recovered/Resolved]
  - Hypokalaemia [Recovered/Resolved]
  - Atrial fibrillation [Recovered/Resolved]
  - Hypoxia [Recovered/Resolved]
  - Blood creatinine increased [Recovered/Resolved]
  - Hypoalbuminaemia [Unknown]
  - Blood creatinine increased [Recovered/Resolved with Sequelae]

NARRATIVE: CASE EVENT DATE: 20250320
